FAERS Safety Report 8835760 (Version 1)
Quarter: 2012Q4

REPORT INFORMATION
  Report Type: 
  Country: DK (occurrence: DK)
  Receive Date: 20121011
  Receipt Date: 20121011
  Transmission Date: 20130627
  Serious: Yes (Hospitalization)
  Sender: FDA-Public Use
  Company Number: DK-NAPPMUNDI-GBR-2012-0011047

PATIENT
  Age: 90 Year
  Sex: Male

DRUGS (10)
  1. OXYNORM [Suspect]
     Indication: PAIN
     Dosage: 5 mg, daily
     Route: 048
     Dates: start: 20120222, end: 20120224
  2. ALOPAM [Suspect]
     Indication: PRODUCT USED FOR UNKNOWN INDICATION
     Dosage: 10 mg, daily
     Route: 065
     Dates: start: 20120222
  3. ALOPAM [Suspect]
     Dosage: STYRKE: 10 mg
     Dates: start: 20120222
  4. PREDNISOLON [Concomitant]
  5. FURIX [Concomitant]
  6. PERSANTIN [Concomitant]
  7. PHENERGAN                          /00033001/ [Concomitant]
  8. ALENDRONATE ARROW [Concomitant]
  9. SIFROL [Concomitant]
  10. TRADOLAN [Concomitant]

REACTIONS (4)
  - Overdose [Recovering/Resolving]
  - Depressed level of consciousness [Recovering/Resolving]
  - Pneumonia aspiration [Not Recovered/Not Resolved]
  - Rhabdomyolysis [Not Recovered/Not Resolved]
